FAERS Safety Report 16107428 (Version 1)
Quarter: 2019Q1

REPORT INFORMATION
  Report Type: Spontaneous
  Country: US (occurrence: US)
  Receive Date: 20190322
  Receipt Date: 20190322
  Transmission Date: 20190418
  Serious: No
  Sender: FDA-Public Use
  Company Number: US-ARALEZ PHARMACEUTICALS R+D INC.-2019-ARA-000875

PATIENT
  Age: 83 Year
  Sex: Female

DRUGS (1)
  1. TOPROL XL [Suspect]
     Active Substance: METOPROLOL SUCCINATE
     Indication: PRODUCT USED FOR UNKNOWN INDICATION
     Dosage: 50 MG, BID

REACTIONS (1)
  - Inappropriate schedule of product administration [Not Recovered/Not Resolved]
